FAERS Safety Report 21529811 (Version 4)
Quarter: 2024Q1

REPORT INFORMATION
  Report Type: Report from Study
  Country: US (occurrence: US)
  Receive Date: 20221031
  Receipt Date: 20240223
  Transmission Date: 20240410
  Serious: Yes (Hospitalization, Other)
  Sender: FDA-Public Use
  Company Number: US-OTSUKA-2022_049940

PATIENT
  Age: 76 Year
  Sex: Male

DRUGS (3)
  1. CEDAZURIDINE\DECITABINE [Suspect]
     Active Substance: CEDAZURIDINE\DECITABINE
     Indication: Myelodysplastic syndrome
     Dosage: 1 DF (35-100 MG), QD (ON DAY 1 TO 4 OF EACH 28 DAYS CYCLE) (CYCLE 4)
     Route: 048
     Dates: start: 20220929
  2. CEDAZURIDINE\DECITABINE [Suspect]
     Active Substance: CEDAZURIDINE\DECITABINE
     Dosage: 1 DF (35-100 MG), QD (ON DAY 1 TO 4 OF EACH 28 DAYS CYCLE) (CYCLE 1, CYCLE 3)
     Route: 048
  3. CEDAZURIDINE\DECITABINE [Suspect]
     Active Substance: CEDAZURIDINE\DECITABINE
     Dosage: 1 DF (35-100 MG), QD (FOR 5 DAYS OF EACH 42 DAYS CYCLE) (CYCLE 15)
     Route: 048

REACTIONS (4)
  - Transfusion [Recovering/Resolving]
  - Full blood count abnormal [Recovering/Resolving]
  - Full blood count abnormal [Unknown]
  - Inappropriate schedule of product administration [Unknown]

NARRATIVE: CASE EVENT DATE: 20221216
